FAERS Safety Report 22217974 (Version 1)
Quarter: 2023Q2

REPORT INFORMATION
  Report Type: Spontaneous
  Country: US (occurrence: None)
  Receive Date: 20230414
  Receipt Date: 20230414
  Transmission Date: 20230722
  Serious: Yes (Life-Threatening, Hospitalization)
  Sender: FDA-Public Use
  Company Number: None

PATIENT
  Age: 26 Year
  Sex: Male
  Weight: 55.4 kg

DRUGS (2)
  1. 4-FLUOROPHENIBUT [Suspect]
     Active Substance: 4-FLUOROPHENIBUT
     Indication: Anxiety
     Dosage: OTHER FREQUENCY : ONCE;?
     Route: 048
  2. 4-FLUOROPHENIBUT [Suspect]
     Active Substance: 4-FLUOROPHENIBUT
     Indication: Euphoric mood

REACTIONS (5)
  - Loss of consciousness [None]
  - Mental status changes [None]
  - Lethargy [None]
  - Miosis [None]
  - Respiratory depression [None]
